FAERS Safety Report 5883853-X (Version None)
Quarter: 2008Q3

REPORT INFORMATION
  Report Type: 
  Country: None (occurrence: None)
  Receive Date: 20080915
  Receipt Date: 20080910
  Transmission Date: 20090109
  Serious: Yes (Other)
  Sender: FDA-Public Use
  Company Number: JP-AVENTIS-200812257JP

PATIENT
  Age: 83 Year
  Sex: Female

DRUGS (3)
  1. LASIX [Suspect]
     Route: 048
  2. UNKNOWN DRUG [Concomitant]
  3. LOPRESOR                           /00376902/ [Concomitant]

REACTIONS (2)
  - BLISTER [None]
  - RASH GENERALISED [None]
